FAERS Safety Report 9311145 (Version 2)
Quarter: 2013Q2

REPORT INFORMATION
  Report Type: Spontaneous
  Country: US (occurrence: US)
  Receive Date: 20130528
  Receipt Date: 20130627
  Transmission Date: 20140414
  Serious: Yes (Death)
  Sender: FDA-Public Use
  Company Number: US-PFIZER INC-2013160360

PATIENT
  Age: 88 Year
  Sex: Female

DRUGS (1)
  1. XALKORI [Suspect]
     Indication: LUNG NEOPLASM MALIGNANT
     Dosage: 250 MG, 1 CAPSULE TWICE A DAY
     Route: 048
     Dates: start: 20130518

REACTIONS (2)
  - Death [Fatal]
  - Vomiting [Recovered/Resolved]
